FAERS Safety Report 5240034-0 (Version None)
Quarter: 2007Q1

REPORT INFORMATION
  Report Type: 
  Country: None (occurrence: None)
  Receive Date: 20070216
  Receipt Date: 20070207
  Transmission Date: 20070707
  Serious: Yes (Hospitalization)
  Sender: FDA-Public Use
  Company Number: BE-ABBOTT-07P-013-0358686-00

PATIENT
  Sex: Female

DRUGS (3)
  1. HUMIRA [Suspect]
     Indication: PSORIATIC ARTHROPATHY
     Route: 058
     Dates: start: 20060301
  2. LEVOTHYROXINE SODIUM [Concomitant]
     Indication: DRUG USE FOR UNKNOWN INDICATION
     Dosage: 125 MCG DAILY
  3. DESORELLE [Concomitant]
     Indication: DRUG USE FOR UNKNOWN INDICATION
     Dosage: NOT REPORTED

REACTIONS (9)
  - ABDOMINAL PAIN [None]
  - DYSPEPSIA [None]
  - GASTRITIS [None]
  - HYPOALBUMINAEMIA [None]
  - MALAISE [None]
  - MALNUTRITION [None]
  - NAUSEA [None]
  - REFLUX OESOPHAGITIS [None]
  - WEIGHT DECREASED [None]
